FAERS Safety Report 23872087 (Version 1)
Quarter: 2024Q2

REPORT INFORMATION
  Report Type: Spontaneous
  Country: US (occurrence: US)
  Receive Date: 20240520
  Receipt Date: 20240520
  Transmission Date: 20240716
  Serious: Yes (Other)
  Sender: FDA-Public Use
  Company Number: US-AMGEN-USASP2024095043

PATIENT

DRUGS (2)
  1. MVASI [Suspect]
     Active Substance: BEVACIZUMAB-AWWB
     Indication: Product used for unknown indication
     Dosage: 1400 MILLIGRAM (3X400 MG VIALS, LOT: 1168920; 2X100MG VIALS, LOT: 1168904)
     Route: 065
  2. MVASI [Suspect]
     Active Substance: BEVACIZUMAB-AWWB
     Dosage: 1400 MILLIGRAM (3X400 MG VIALS, LOT: 1168920; 2X100MG VIALS, LOT: 1168904)
     Route: 065

REACTIONS (1)
  - Ill-defined disorder [Unknown]
